FAERS Safety Report 5444887-2 (Version None)
Quarter: 2007Q3

REPORT INFORMATION
  Report Type: 
  Country: None (occurrence: None)
  Receive Date: 20070906
  Receipt Date: 20070830
  Transmission Date: 20080115
  Serious: Yes (Other)
  Sender: FDA-Public Use
  Company Number: A0643133A

PATIENT
  Age: 35 Year
  Sex: Female
  Weight: 78 kg

DRUGS (5)
  1. AEROLIN [Suspect]
     Indication: PROPHYLAXIS
     Route: 065
     Dates: start: 20070216, end: 20070319
  2. AEROLIN [Suspect]
     Dosage: 4MG FOUR TIMES PER DAY
     Route: 065
     Dates: start: 20070219, end: 20070302
  3. FERROUS SULFATE TAB [Concomitant]
     Dates: start: 20061101
  4. ASPIRIN [Concomitant]
     Dates: start: 20060901
  5. ACETAMINOPHEN [Concomitant]
     Indication: HEADACHE

REACTIONS (5)
  - DRUG INEFFECTIVE [None]
  - FATIGUE [None]
  - MUSCLE RIGIDITY [None]
  - PREMATURE LABOUR [None]
  - TREMOR [None]
